FAERS Safety Report 9228485 (Version 3)
Quarter: 2013Q2

REPORT INFORMATION
  Report Type: Spontaneous
  Country: US (occurrence: US)
  Receive Date: 20130412
  Receipt Date: 20130605
  Transmission Date: 20140414
  Serious: Yes (Death)
  Sender: FDA-Public Use
  Company Number: US-CELGENEUS-163-21880-13041321

PATIENT
  Age: 69 Year
  Sex: Male

DRUGS (9)
  1. REVLIMID [Suspect]
     Indication: PLASMA CELL MYELOMA
     Dosage: 10 MILLIGRAM
     Route: 048
     Dates: start: 20120612
  2. REVLIMID [Suspect]
     Dosage: 15-10MG
     Route: 048
     Dates: start: 201209
  3. REVLIMID [Suspect]
     Dosage: 15 MILLIGRAM
     Route: 048
     Dates: start: 201301, end: 2013
  4. REVLIMID [Suspect]
     Dosage: 20 MILLIGRAM
     Route: 048
     Dates: start: 201303, end: 2013
  5. DILTIAZEM [Concomitant]
     Indication: HYPERTENSION
     Route: 065
  6. OMEPRAZOLE [Concomitant]
     Indication: GASTROOESOPHAGEAL REFLUX DISEASE
     Route: 065
  7. METHADONE [Concomitant]
     Indication: PAIN
     Route: 065
  8. PRADAXA [Concomitant]
     Indication: ATRIAL FIBRILLATION
     Route: 065
  9. NUVIGIL [Concomitant]
     Indication: DEPRESSION
     Route: 065

REACTIONS (2)
  - Urosepsis [Fatal]
  - Plasma cell myeloma [Not Recovered/Not Resolved]
